FAERS Safety Report 11726253 (Version 1)
Quarter: 2015Q4

REPORT INFORMATION
  Report Type: Spontaneous
  Country: US (occurrence: US)
  Receive Date: 20151110
  Receipt Date: 20151110
  Transmission Date: 20160304
  Serious: No
  Sender: FDA-Public Use
  Company Number: US-ELI_LILLY_AND_COMPANY-US201110007835

PATIENT
  Age: 76 Year
  Sex: Female

DRUGS (1)
  1. FORTEO [Suspect]
     Active Substance: TERIPARATIDE
     Indication: OSTEOPOROSIS
     Dosage: 20 UG, QD
     Dates: start: 20090910, end: 20110910

REACTIONS (4)
  - Gait disturbance [Not Recovered/Not Resolved]
  - Bone densitometry [Unknown]
  - Pain [Not Recovered/Not Resolved]
  - Pelvic deformity [Not Recovered/Not Resolved]

NARRATIVE: CASE EVENT DATE: 201108
